FAERS Safety Report 7584889-3 (Version None)
Quarter: 2011Q2

REPORT INFORMATION
  Report Type: 
  Country: None (occurrence: None)
  Receive Date: 20110630
  Receipt Date: 20110620
  Transmission Date: 20111010
  Serious: Yes (Hospitalization)
  Sender: FDA-Public Use
  Company Number: UG-ABBOTT-11P-165-0733930-00

PATIENT
  Age: 59 Year
  Sex: Male

DRUGS (3)
  1. SEPTRA [Concomitant]
     Indication: PRODUCT USED FOR UNKNOWN INDICATION
     Dates: start: 20080909
  2. RALTEGRAVIR [Concomitant]
     Indication: HIV INFECTION
     Dates: start: 20110413
  3. LOPINAVIR/RITONAVIR [Suspect]
     Indication: HIV INFECTION
     Route: 048
     Dates: start: 20110413

REACTIONS (3)
  - LYMPH NODE TUBERCULOSIS [None]
  - THROMBOCYTOPENIA [None]
  - EXTRAPULMONARY TUBERCULOSIS [None]
